FAERS Safety Report 18452252 (Version 4)
Quarter: 2021Q1

REPORT INFORMATION
  Report Type: Spontaneous
  Country: US (occurrence: US)
  Receive Date: 20201102
  Receipt Date: 20210108
  Transmission Date: 20210419
  Serious: Yes (Hospitalization, Other)
  Sender: FDA-Public Use
  Company Number: US-BIOVITRUM-2020US5883

PATIENT
  Sex: Female
  Weight: 4 kg

DRUGS (8)
  1. MUPIROCIN. [Concomitant]
     Active Substance: MUPIROCIN
     Dosage: 2 PERCENT
  2. POLY?VI?SOL WITH IRON [Concomitant]
     Active Substance: IRON\VITAMINS
  3. BETHANECHOL CHLORIDE. [Concomitant]
     Active Substance: BETHANECHOL CHLORIDE
  4. SIMETHICONE (DIMETHICONE) [Concomitant]
     Active Substance: DIMETHICONE
  5. SYNAGIS [Suspect]
     Active Substance: PALIVIZUMAB
     Indication: ANTIVIRAL PROPHYLAXIS
     Dosage: 100MG/1ML VL LIQUID
     Route: 030
     Dates: start: 20200810
  6. PRILOSEC [Concomitant]
     Active Substance: OMEPRAZOLE MAGNESIUM
  7. FAMOTIDINE. [Concomitant]
     Active Substance: FAMOTIDINE
  8. FUROSEMIDE. [Concomitant]
     Active Substance: FUROSEMIDE

REACTIONS (2)
  - Pyrexia [Unknown]
  - Pneumonia aspiration [Unknown]
